FAERS Safety Report 15461879 (Version 3)
Quarter: 2018Q4

REPORT INFORMATION
  Report Type: Spontaneous
  Country: US (occurrence: US)
  Receive Date: 20181003
  Receipt Date: 20181016
  Transmission Date: 20190204
  Serious: No
  Sender: FDA-Public Use
  Company Number: US-AMGEN-USASP2018127545

PATIENT
  Age: 52 Year
  Sex: Male
  Weight: 113.83 kg

DRUGS (8)
  1. BORTEZOMIB W/CYCLOPHOSPHAMIDE/DEXAMETHASONE [Concomitant]
     Active Substance: CYCLOPHOSPHAMIDE\BORTEZOMIB\DEXAMETHASONE
     Dosage: UNK
     Dates: start: 20180404
  2. XANAX [Concomitant]
     Active Substance: ALPRAZOLAM
     Indication: ANXIETY
     Dosage: UNK
  3. ALLOPURINOL. [Concomitant]
     Active Substance: ALLOPURINOL
  4. BORTEZOMIB W/CYCLOPHOSPHAMIDE/DEXAMETHASONE [Concomitant]
     Active Substance: CYCLOPHOSPHAMIDE\BORTEZOMIB\DEXAMETHASONE
     Indication: PLASMA CELL MYELOMA
  5. BACTRIM [Concomitant]
     Active Substance: SULFAMETHOXAZOLE\TRIMETHOPRIM
  6. PAROXETINE. [Concomitant]
     Active Substance: PAROXETINE
  7. XGEVA [Suspect]
     Active Substance: DENOSUMAB
     Indication: PLASMA CELL MYELOMA
     Dosage: UNK
     Route: 065
  8. OMEPRAZOLE. [Concomitant]
     Active Substance: OMEPRAZOLE

REACTIONS (3)
  - Blood parathyroid hormone increased [Unknown]
  - Hypophosphataemia [Not Recovered/Not Resolved]
  - Urine phosphorus increased [Not Recovered/Not Resolved]

NARRATIVE: CASE EVENT DATE: 201804
